FAERS Safety Report 21740279 (Version 2)
Quarter: 2023Q2

REPORT INFORMATION
  Report Type: Spontaneous
  Country: US (occurrence: US)
  Receive Date: 20221216
  Receipt Date: 20230412
  Transmission Date: 20230721
  Serious: No
  Sender: FDA-Public Use
  Company Number: US-BRISTOL-MYERS SQUIBB COMPANY-2022-154269

PATIENT
  Age: 77 Year
  Sex: Female
  Weight: 92.079 kg

DRUGS (1)
  1. REVLIMID [Suspect]
     Active Substance: LENALIDOMIDE
     Indication: Plasma cell myeloma
     Dosage: DAILY FOR 21DAYS THEN 7 DAYS OFF
     Route: 048
     Dates: start: 20170103

REACTIONS (1)
  - Sinusitis [Unknown]
